FAERS Safety Report 17146481 (Version 1)
Quarter: 2019Q4

REPORT INFORMATION
  Report Type: Spontaneous
  Country: FR (occurrence: FR)
  Receive Date: 20191212
  Receipt Date: 20191212
  Transmission Date: 20200122
  Serious: Yes (Hospitalization)
  Sender: FDA-Public Use
  Company Number: NVSC2019FR066236

PATIENT
  Age: 87 Year
  Sex: Female
  Weight: 53 kg

DRUGS (1)
  1. VOLTARENE (DICLOFENAC) [Suspect]
     Active Substance: DICLOFENAC
     Indication: PAIN IN EXTREMITY
     Dosage: 1 DF, QD
     Route: 003
     Dates: start: 20180418, end: 20180418

REACTIONS (1)
  - Dermatitis contact [Recovered/Resolved]

NARRATIVE: CASE EVENT DATE: 20180418
